FAERS Safety Report 9246070 (Version 1)
Quarter: 2013Q2

REPORT INFORMATION
  Report Type: Spontaneous
  Country: US (occurrence: US)
  Receive Date: 20130422
  Receipt Date: 20130422
  Transmission Date: 20140414
  Serious: No
  Sender: FDA-Public Use
  Company Number: US-PFIZER INC-2013125006

PATIENT
  Age: 30 Year
  Sex: Female

DRUGS (2)
  1. SULFAMETHOXAZOLE/TRIMETHOPRIM [Suspect]
  2. PHENOXYMETHYLPENICILLIN POTASSIUM [Suspect]

REACTIONS (1)
  - Drug hypersensitivity [Unknown]
